FAERS Safety Report 7955156-0 (Version None)
Quarter: 2011Q4

REPORT INFORMATION
  Report Type: 
  Country: None (occurrence: None)
  Receive Date: 20111202
  Receipt Date: 20111122
  Transmission Date: 20120403
  Serious: Yes (Other)
  Sender: FDA-Public Use
  Company Number: TH-JNJFOC-20111110157

PATIENT
  Sex: Male
  Weight: 78 kg

DRUGS (11)
  1. DIAZEPAM [Concomitant]
     Indication: AGITATION
     Dates: start: 20111116, end: 20111116
  2. INVEGA SUSTENNA [Suspect]
     Indication: SCHIZOPHRENIA
     Route: 030
     Dates: start: 20111102
  3. TRAZODONE HYDROCHLORIDE [Concomitant]
     Dates: start: 20111004, end: 20111101
  4. TRIFLUOPERAZINE HCL [Concomitant]
     Indication: SCHIZOPHRENIA
     Dates: start: 20111116
  5. TRIHEXYPHENIDYL HCL [Concomitant]
     Indication: PARKINSONISM
     Dates: start: 20111004, end: 20111101
  6. TRIHEXYPHENIDYL HCL [Concomitant]
     Dates: start: 20110928, end: 20111003
  7. INVEGA SUSTENNA [Suspect]
     Route: 030
     Dates: start: 20110928
  8. TRAZODONE HYDROCHLORIDE [Concomitant]
     Dates: start: 20111102, end: 20111115
  9. TRAZODONE HYDROCHLORIDE [Concomitant]
     Dates: start: 20111116
  10. TRAZODONE HYDROCHLORIDE [Concomitant]
     Indication: INSOMNIA
     Dates: start: 20100621, end: 20111003
  11. TRIHEXYPHENIDYL HCL [Concomitant]
     Dates: start: 20111116

REACTIONS (1)
  - SELF INJURIOUS BEHAVIOUR [None]
